FAERS Safety Report 21132539 (Version 1)
Quarter: 2022Q3

REPORT INFORMATION
  Report Type: Spontaneous
  Country: CN (occurrence: CN)
  Receive Date: 20220726
  Receipt Date: 20220726
  Transmission Date: 20221027
  Serious: Yes (Hospitalization)
  Sender: FDA-Public Use
  Company Number: CN-OTSUKA-2022_037897

PATIENT
  Age: 62 Year
  Sex: Female

DRUGS (5)
  1. DACOGEN [Suspect]
     Active Substance: DECITABINE
     Indication: Diffuse large B-cell lymphoma
     Dosage: 10 MG (10 MG,1 IN 1 D)
     Route: 042
     Dates: start: 20220607, end: 20220711
  2. DOXORUBICIN [Suspect]
     Active Substance: DOXORUBICIN
     Indication: Diffuse large B-cell lymphoma
     Dosage: 47 MG (47 MG,1 IN 1 D)
     Route: 042
     Dates: start: 20220613, end: 20220613
  3. CYCLOPHOSPHAMIDE [Suspect]
     Active Substance: CYCLOPHOSPHAMIDE
     Indication: Diffuse large B-cell lymphoma
     Dosage: 1.1 GM (1.1 GM,1 IN 1 D)
     Route: 042
     Dates: start: 20220613, end: 20220613
  4. VINCRISTINE SULFATE [Suspect]
     Active Substance: VINCRISTINE SULFATE
     Indication: Diffuse large B-cell lymphoma
     Dosage: 2 MG (2 MG,1 IN 1 D)
     Route: 042
     Dates: start: 20220613, end: 20220613
  5. RITUXAN [Suspect]
     Active Substance: RITUXIMAB
     Indication: Diffuse large B-cell lymphoma
     Dosage: 592 MG (592 MG,1 IN 1 D)
     Route: 042
     Dates: start: 20220612, end: 20220612

REACTIONS (3)
  - Agranulocytosis [Recovering/Resolving]
  - Myelosuppression [Recovering/Resolving]
  - Off label use [Unknown]

NARRATIVE: CASE EVENT DATE: 20220607
